FAERS Safety Report 4328410-1 (Version None)
Quarter: 2004Q1

REPORT INFORMATION
  Report Type: 
  Country: None (occurrence: None)
  Receive Date: 20040325
  Receipt Date: 20030918
  Transmission Date: 20041129
  Serious: Yes (Life-Threatening, Hospitalization)
  Sender: FDA-Public Use
  Company Number: TAP2003Q02174

PATIENT
  Age: 56 Year
  Sex: Male
  Weight: 126.5536 kg

DRUGS (2)
  1. LUPRON DEPOT [Suspect]
     Indication: PROSTATE CANCER
     Dosage: 7.5 MG, ONCE, INTRAMUSCULAR
     Route: 030
     Dates: start: 20030818, end: 20030818
  2. CASODEX [Concomitant]

REACTIONS (1)
  - PULMONARY EMBOLISM [None]
